FAERS Safety Report 9258455 (Version 1)
Quarter: 2013Q2

REPORT INFORMATION
  Report Type: Spontaneous
  Country: US (occurrence: US)
  Receive Date: 20130426
  Receipt Date: 20130426
  Transmission Date: 20140414
  Serious: No
  Sender: FDA-Public Use
  Company Number: US-B.I. PHARMACEUTICALS,INC./RIDGEFIELD-2013-BI-10646BP

PATIENT
  Age: 62 Year
  Sex: Female

DRUGS (5)
  1. JENTADUETO [Suspect]
     Dates: start: 20130407, end: 20130409
  2. SIMVASTATIN [Concomitant]
  3. ATENOLOL [Concomitant]
  4. LISINOPRIL [Concomitant]
  5. GLIPIZIDE [Concomitant]

REACTIONS (2)
  - Swollen tongue [Unknown]
  - Oral discomfort [Unknown]
